FAERS Safety Report 10910788 (Version 1)
Quarter: 2015Q1

REPORT INFORMATION
  Report Type: Report from Study
  Country: US (occurrence: US)
  Receive Date: 20150312
  Receipt Date: 20150312
  Transmission Date: 20150721
  Serious: Yes (Other)
  Sender: FDA-Public Use
  Company Number: PHEH2015US003314

PATIENT
  Sex: Male

DRUGS (7)
  1. TIZANIDINE (TIZANIDINE) [Concomitant]
     Active Substance: TIZANIDINE
     Indication: PRODUCT USED FOR UNKNOWN INDICATION
     Dosage: 1/4 PO QHS 7 DAYS THEN INCREASE BY 1/4 PILL Q7 DAYS UNTIL ON 2 PILLS PO QHS
     Route: 065
  2. VALIUM [Concomitant]
     Active Substance: DIAZEPAM
     Indication: PRODUCT USED FOR UNKNOWN INDICATION
     Dosage: 1 PO 1 HR PRIOR TO MRI AND ONE AT TIME OF MRI
     Route: 048
  3. VITAMIN D [Concomitant]
     Active Substance: CHOLECALCIFEROL
     Indication: PRODUCT USED FOR UNKNOWN INDICATION
     Dosage: 5000 OT, QW
     Route: 048
  4. VENLAFAXINE HYDROCHLORIDE. [Concomitant]
     Active Substance: VENLAFAXINE HYDROCHLORIDE
     Dosage: 75 MG, QD EVERY MORNING
     Route: 048
  5. VENLAFAXINE HYDROCHLORIDE. [Concomitant]
     Active Substance: VENLAFAXINE HYDROCHLORIDE
     Indication: PRODUCT USED FOR UNKNOWN INDICATION
     Dosage: 37.5 MG, QD EVERY MORNING FOR 1 TO 2 WEEKS
     Route: 048
  6. TECFIDERA [Concomitant]
     Active Substance: DIMETHYL FUMARATE
     Indication: PRODUCT USED FOR UNKNOWN INDICATION
     Dosage: 1 PO BID 1/4 PO QHS FOR 7DAYS THEN INCREASE BY 1/4 PILL Q 7 DAYS UNTIL ON 2 PILLS PO QHS
     Route: 048
  7. GILENYA [Suspect]
     Active Substance: FINGOLIMOD HYDROCHLORIDE
     Indication: MULTIPLE SCLEROSIS
     Dosage: 0.5 MG, QD
     Route: 048
     Dates: start: 201202, end: 201205

REACTIONS (14)
  - Panic attack [Unknown]
  - Gait spastic [Unknown]
  - Urinary tract disorder [Unknown]
  - Headache [Unknown]
  - Cerebrovascular accident [Unknown]
  - Erectile dysfunction [Unknown]
  - Asthenia [Unknown]
  - Vitamin D deficiency [Unknown]
  - Blood pressure decreased [Unknown]
  - Seizure [Unknown]
  - Nightmare [Unknown]
  - Sleep disorder [Unknown]
  - Anxiety [Not Recovered/Not Resolved]
  - Musculoskeletal stiffness [Unknown]
